FAERS Safety Report 8405956-8 (Version None)
Quarter: 2012Q2

REPORT INFORMATION
  Report Type: 
  Country: None (occurrence: None)
  Receive Date: 20120604
  Receipt Date: 20120523
  Transmission Date: 20120825
  Serious: Yes (Other)
  Sender: FDA-Public Use
  Company Number: US-JNJFOC-20110910071

PATIENT
  Sex: Female
  Weight: 86.18 kg

DRUGS (2)
  1. REMICADE [Suspect]
     Indication: CROHN'S DISEASE
     Route: 042
     Dates: start: 20101001, end: 20110601
  2. REMICADE [Suspect]
     Route: 042
     Dates: start: 20110701

REACTIONS (13)
  - ABDOMINAL PAIN LOWER [None]
  - DYSPNOEA [None]
  - CHEST PAIN [None]
  - EATING DISORDER [None]
  - SURGERY [None]
  - ABDOMINAL DISTENSION [None]
  - WEIGHT FLUCTUATION [None]
  - WEIGHT INCREASED [None]
  - HEPATIC PAIN [None]
  - PAIN [None]
  - SENSORY DISTURBANCE [None]
  - FEELING ABNORMAL [None]
  - HEPATOMEGALY [None]
